FAERS Safety Report 6650357-6 (Version None)
Quarter: 2010Q1

REPORT INFORMATION
  Report Type: 
  Country: None (occurrence: None)
  Receive Date: 20100325
  Receipt Date: 20100315
  Transmission Date: 20100710
  Serious: Yes (Other)
  Sender: FDA-Public Use
  Company Number: FR-JNJFOC-20100305907

PATIENT

DRUGS (2)
  1. INFLIXIMAB [Suspect]
     Indication: PROCTITIS ULCERATIVE
     Route: 042
  2. INFLIXIMAB [Suspect]
     Dosage: INDUCTION PHASE, WEEK 0, 2, AND 6
     Route: 042

REACTIONS (3)
  - BURSITIS [None]
  - DIVERTICULITIS [None]
  - INFECTION [None]
